FAERS Safety Report 6965152-8 (Version None)
Quarter: 2010Q3

REPORT INFORMATION
  Report Type: 
  Country: None (occurrence: None)
  Receive Date: 20100903
  Receipt Date: 20100824
  Transmission Date: 20110219
  Serious: Yes (Other)
  Sender: FDA-Public Use
  Company Number: US-WYE-H17194510

PATIENT
  Sex: Male
  Weight: 86.26 kg

DRUGS (5)
  1. EFFEXOR [Suspect]
     Indication: DEPRESSION
  2. EFFEXOR [Suspect]
     Indication: ATTENTION DEFICIT/HYPERACTIVITY DISORDER
  3. SINGULAIR [Concomitant]
     Dosage: UNKNOWN
  4. ADVAIR DISKUS 100/50 [Concomitant]
     Dosage: UNKNOWN
  5. ADDERALL 10 [Concomitant]
     Dosage: UNKNOWN

REACTIONS (9)
  - AGGRESSION [None]
  - ANXIETY [None]
  - CRYING [None]
  - DEPRESSION [None]
  - DRUG DEPENDENCE [None]
  - DRUG WITHDRAWAL SYNDROME [None]
  - EMOTIONAL DISORDER [None]
  - HYPERTENSION [None]
  - INTENTIONAL DRUG MISUSE [None]
